FAERS Safety Report 8255221-7 (Version None)
Quarter: 2012Q2

REPORT INFORMATION
  Report Type: 
  Country: None (occurrence: None)
  Receive Date: 20120403
  Receipt Date: 20120320
  Transmission Date: 20120825
  Serious: Yes (Other)
  Sender: FDA-Public Use
  Company Number: FR-MYLANLABS-2012S1006298

PATIENT
  Age: 80 Year
  Sex: Male
  Weight: 73 kg

DRUGS (2)
  1. SORAFENIB [Interacting]
     Indication: HEPATIC NEOPLASM MALIGNANT
     Route: 065
     Dates: start: 20080601
  2. FELODIPINE [Suspect]
     Indication: HYPERTENSION
     Route: 065

REACTIONS (6)
  - DRUG INTERACTION [None]
  - DECREASED APPETITE [None]
  - DIARRHOEA [None]
  - ASTHENIA [None]
  - DYSPHONIA [None]
  - CHEMOTHERAPEUTIC DRUG LEVEL INCREASED [None]
